FAERS Safety Report 24641595 (Version 1)
Quarter: 2024Q4

REPORT INFORMATION
  Report Type: Spontaneous
  Country: US (occurrence: None)
  Receive Date: 20241118
  Receipt Date: 20241118
  Transmission Date: 20250115
  Serious: No
  Sender: Public
  Company Number: None

PATIENT
  Age: 5 Week
  Sex: Female
  Weight: 3.6 kg

DRUGS (1)
  1. BEYFORTUS [Suspect]
     Active Substance: NIRSEVIMAB-ALIP
     Indication: Drug therapy
     Dates: start: 20241025, end: 20241025

REACTIONS (4)
  - Irritability [None]
  - Crying [None]
  - Lethargy [None]
  - Hypersomnia [None]

NARRATIVE: CASE EVENT DATE: 20241025
